FAERS Safety Report 9193818 (Version 3)
Quarter: 2014Q1

REPORT INFORMATION
  Report Type: Report from Study
  Country: US (occurrence: US)
  Receive Date: 20120703
  Receipt Date: 20140225
  Transmission Date: 20141002
  Serious: Yes (Other)
  Sender: FDA-Public Use
  Company Number: PHEH2012US006395

PATIENT
  Age: 54 Year
  Sex: Female

DRUGS (8)
  1. GILENYA [Suspect]
     Indication: MULTIPLE SCLEROSIS
     Dosage: 0.5 MG, QD
     Route: 048
     Dates: start: 20110101
  2. VITAMIN B12 [Concomitant]
  3. VITAMIN D [Concomitant]
  4. VITAMIN E [Concomitant]
  5. CALCIUM [Concomitant]
  6. LOSARTAN [Concomitant]
     Indication: HYPERTENSION
  7. SIMVASTATIN [Concomitant]
     Indication: BLOOD CHOLESTEROL INCREASED
  8. ESTRADIOL [Concomitant]
     Dosage: 1 MG, UNK

REACTIONS (7)
  - Fall [Not Recovered/Not Resolved]
  - Joint injury [Unknown]
  - Arthritis [Unknown]
  - Bursitis [Unknown]
  - Dysstasia [Recovered/Resolved]
  - Muscular weakness [Not Recovered/Not Resolved]
  - Dizziness [Recovering/Resolving]
